FAERS Safety Report 6112307-0 (Version None)
Quarter: 2009Q1

REPORT INFORMATION
  Report Type: 
  Country: None (occurrence: None)
  Receive Date: 20090311
  Receipt Date: 20090311
  Transmission Date: 20090719
  Serious: Yes (Other)
  Sender: FDA-Public Use
  Company Number: None

PATIENT
  Age: 71 Year
  Sex: Female
  Weight: 84.369 kg

DRUGS (1)
  1. PLAVIX [Suspect]
     Dosage: 1 PER DAY
     Dates: start: 20080617, end: 20081121

REACTIONS (2)
  - EYE HAEMORRHAGE [None]
  - GASTRITIS [None]
